FAERS Safety Report 4877652-5 (Version None)
Quarter: 2006Q1

REPORT INFORMATION
  Report Type: 
  Country: None (occurrence: None)
  Receive Date: 20060109
  Receipt Date: 20051227
  Transmission Date: 20060701
  Serious: Yes (Other)
  Sender: FDA-Public Use
  Company Number: 2006000235

PATIENT
  Age: 57 Year
  Sex: Male
  Weight: 102.0593 kg

DRUGS (19)
  1. LIPITOR [Suspect]
     Indication: BLOOD CHOLESTEROL INCREASED
     Dosage: 10 MG (10 MG, 1 IN 1 D), ORAL
     Route: 048
     Dates: start: 20010101
  2. VIAGRA [Suspect]
     Indication: ERECTILE DYSFUNCTION
     Dosage: 100 MG (100 MG, AS NEEDED), ORAL
     Route: 048
     Dates: start: 20050101
  3. TOPROL-XL [Suspect]
     Indication: HYPERTENSION
     Dosage: 100 MG (100 MG, DAILY)
  4. SYNTHROID [Concomitant]
  5. ACTOS [Concomitant]
  6. ALTACE [Concomitant]
  7. PLAVIX [Concomitant]
  8. BUMEX [Concomitant]
  9. KLOR-CON [Concomitant]
  10. AVAPRO [Concomitant]
  11. VERELAN PM [Concomitant]
  12. LANTUS [Concomitant]
  13. HUMALOG [Concomitant]
  14. ALPHAGAN P [Concomitant]
  15. COSOPT [Concomitant]
  16. LUMIGAN [Concomitant]
  17. TIOTROPIUM BROMIDE (TIOTROPIUM BROMIDE) [Concomitant]
  18. ADVAIR DISKUS 100/50 [Concomitant]
  19. HYDROCODONE BITARTRATE [Concomitant]

REACTIONS (8)
  - BLOOD CHOLESTEROL INCREASED [None]
  - DRUG INEFFECTIVE [None]
  - ERECTILE DYSFUNCTION [None]
  - IMPAIRED HEALING [None]
  - LOWER LIMB FRACTURE [None]
  - MYOCARDIAL INFARCTION [None]
  - ROAD TRAFFIC ACCIDENT [None]
  - SUDDEN CARDIAC DEATH [None]
